FAERS Safety Report 6547192-6 (Version None)
Quarter: 2010Q1

REPORT INFORMATION
  Report Type: 
  Country: None (occurrence: None)
  Receive Date: 20100122
  Receipt Date: 20100112
  Transmission Date: 20100710
  Serious: Yes (Hospitalization)
  Sender: FDA-Public Use
  Company Number: BR-ABBOTT-09P-020-0596256-00

PATIENT
  Sex: Male
  Weight: 56 kg

DRUGS (1)
  1. HUMIRA [Suspect]
     Indication: CROHN'S DISEASE
     Dosage: INDUCTION DOSE: 160MG, THEN 80MG AND A MAINTENANCE DOSE OF 40MG EVERY 14 DAYS.
     Route: 058
     Dates: start: 20070901, end: 20090901

REACTIONS (3)
  - CARDIAC ARREST [None]
  - INTESTINAL RESECTION [None]
  - SEVERE ACUTE RESPIRATORY SYNDROME [None]
